FAERS Safety Report 12142827 (Version 1)
Quarter: 2016Q1

REPORT INFORMATION
  Report Type: Spontaneous
  Country: AT (occurrence: AT)
  Receive Date: 20160303
  Receipt Date: 20160303
  Transmission Date: 20160526
  Serious: Yes (Hospitalization, Other)
  Sender: FDA-Public Use
  Company Number: AT-ABBVIE-14P-009-1258612-00

PATIENT
  Sex: Female

DRUGS (4)
  1. DUODOPA [Suspect]
     Active Substance: CARBIDOPA\LEVODOPA
     Dosage: MD 8.0 ML; CR 3.9 ML/H; ED 2.0 ML
     Route: 050
     Dates: start: 20160216
  2. DUODOPA [Suspect]
     Active Substance: CARBIDOPA\LEVODOPA
     Indication: PARKINSON^S DISEASE
     Dosage: MD: 8.0 ML; ED: 2.0 ML; CR: 3.9 ML/H
     Route: 050
     Dates: start: 20110401, end: 201602
  3. DUODOPA [Suspect]
     Active Substance: CARBIDOPA\LEVODOPA
     Dosage: MD 8.0 ML; CR 3.9 ML/H; ED 0.0 ML
     Route: 050
     Dates: start: 201602, end: 20160216
  4. ANTIDEPRESSANTS [Concomitant]
     Active Substance: UNSPECIFIED INGREDIENT
     Indication: PRODUCT USED FOR UNKNOWN INDICATION

REACTIONS (7)
  - Suicidal ideation [Not Recovered/Not Resolved]
  - Hip fracture [Not Recovered/Not Resolved]
  - Device connection issue [Recovered/Resolved]
  - Fall [Not Recovered/Not Resolved]
  - Akinesia [Recovering/Resolving]
  - Aggression [Unknown]
  - Psychotic disorder [Not Recovered/Not Resolved]
